FAERS Safety Report 6935819-6 (Version None)
Quarter: 2010Q3

REPORT INFORMATION
  Report Type: 
  Country: None (occurrence: None)
  Receive Date: 20100823
  Receipt Date: 20100810
  Transmission Date: 20110219
  Serious: Yes (Hospitalization, Other)
  Sender: FDA-Public Use
  Company Number: PHFR2010GB01999

PATIENT
  Sex: Male

DRUGS (1)
  1. CLOZARIL [Suspect]
     Indication: SCHIZOPHRENIA
     Route: 048
     Dates: start: 20100727, end: 20100816

REACTIONS (8)
  - CARDIAC DISORDER [None]
  - GASTROINTESTINAL DISORDER [None]
  - LYMPHADENOPATHY [None]
  - NEUTROPHIL COUNT INCREASED [None]
  - PYREXIA [None]
  - TACHYCARDIA [None]
  - UPPER RESPIRATORY TRACT INFECTION [None]
  - WHITE BLOOD CELL COUNT INCREASED [None]
